FAERS Safety Report 14771318 (Version 1)
Quarter: 2018Q2

REPORT INFORMATION
  Report Type: Spontaneous
  Country: US (occurrence: US)
  Receive Date: 20180417
  Receipt Date: 20180417
  Transmission Date: 20180711
  Serious: No
  Sender: FDA-Public Use
  Company Number: US-ALLERGAN-1747128US

PATIENT
  Sex: Female

DRUGS (3)
  1. LATISSE [Suspect]
     Active Substance: BIMATOPROST
     Dosage: 2 GTT, Q WEEK
     Route: 061
  2. LATISSE [Suspect]
     Active Substance: BIMATOPROST
     Dosage: 2 GTT, QOD
     Route: 061
  3. LATISSE [Suspect]
     Active Substance: BIMATOPROST
     Indication: GROWTH OF EYELASHES
     Dosage: 2 GTT, QHS
     Route: 061
     Dates: start: 20170508, end: 2017

REACTIONS (4)
  - Application site dryness [Recovering/Resolving]
  - Eye inflammation [Recovering/Resolving]
  - Eyelid exfoliation [Recovering/Resolving]
  - Eye pruritus [Recovering/Resolving]

NARRATIVE: CASE EVENT DATE: 20170508
